FAERS Safety Report 7910457-7 (Version None)
Quarter: 2011Q4

REPORT INFORMATION
  Report Type: 
  Country: None (occurrence: None)
  Receive Date: 20111111
  Receipt Date: 20110413
  Transmission Date: 20120403
  Serious: No
  Sender: FDA-Public Use
  Company Number: US-BAYER-2011-071664

PATIENT
  Sex: Female
  Weight: 50 kg

DRUGS (4)
  1. ASPIRIN [Suspect]
     Indication: ISCHAEMIC HEART DISEASE PROPHYLAXIS
     Dosage: 1 TABLET ONCE DAILY
     Route: 048
  2. FISH OIL [Suspect]
  3. VITAMIN E [Concomitant]
  4. PHILLIPS' LAXATIVE DIETARY SUPPLEMENT [Suspect]
     Indication: LAXATIVE SUPPORTIVE CARE
     Dosage: 1 TABLET AS NEEDED
     Route: 048

REACTIONS (1)
  - DIARRHOEA [None]
